FAERS Safety Report 6339394-9 (Version None)
Quarter: 2009Q3

REPORT INFORMATION
  Report Type: 
  Country: None (occurrence: None)
  Receive Date: 20090828
  Receipt Date: 20080922
  Transmission Date: 20100115
  Serious: Yes (Hospitalization)
  Sender: FDA-Public Use
  Company Number: KADN20080361

PATIENT
  Age: 64 Year
  Sex: Female
  Weight: 63.5036 kg

DRUGS (5)
  1. KADIAN [Suspect]
     Indication: BACK PAIN
     Dosage: 200 MG, 1 IN 8 HR, ORAL
     Route: 048
     Dates: start: 20080911, end: 20080914
  2. OXYCONTIN [Concomitant]
  3. LEVOXYL [Concomitant]
  4. VYTORIN 1/20 [Concomitant]
  5. COMBIVENT [Concomitant]

REACTIONS (3)
  - ACCIDENTAL OVERDOSE [None]
  - RESPIRATORY DEPRESSION [None]
  - SOMNOLENCE [None]
